FAERS Safety Report 8305603-X (Version None)
Quarter: 2012Q2

REPORT INFORMATION
  Report Type: 
  Country: None (occurrence: None)
  Receive Date: 20120423
  Receipt Date: 20120412
  Transmission Date: 20120825
  Serious: Yes (Hospitalization, Other)
  Sender: FDA-Public Use
  Company Number: PHFR2012GB001330

PATIENT
  Sex: Male

DRUGS (12)
  1. ZUCLOPENTHIXOL [Concomitant]
     Dosage: 25 MG, BID
  2. RAMIPRIL [Concomitant]
     Dosage: 10 MG, QD
  3. SIMVASTATIN [Concomitant]
     Dosage: 40 MG, QD
  4. AMLODIPINE [Concomitant]
     Dosage: 5 MG, QD
  5. VENLAFAXINE [Concomitant]
     Dosage: 150 MG, QD
  6. IBUPROFEN [Concomitant]
     Dosage: 400 MG, TID
  7. CLOZARIL [Suspect]
     Indication: SCHIZOPHRENIA
     Dosage: 800 MG, DAILY
     Route: 048
     Dates: start: 19920717
  8. CLOZARIL [Suspect]
     Dosage: 300 MG, BID BD (IN MORNING AND EVENING)
     Route: 048
  9. PROCYCLIDINE HYDROCHLORIDE 2MG TAB [Concomitant]
     Dosage: 5 MG, QD
  10. LANSOPRAZOLE [Concomitant]
     Dosage: 30 MG, QD
  11. CLOZARIL [Suspect]
     Dosage: 200 MG, AFTERNOON
     Route: 048
  12. ACETAMINOPHEN [Concomitant]
     Dosage: 1 G, QD

REACTIONS (9)
  - SPINAL CORD INJURY [None]
  - MUSCULAR WEAKNESS [None]
  - CERVICAL MYELOPATHY [None]
  - INTERVERTEBRAL DISC PROTRUSION [None]
  - GAIT DISTURBANCE [None]
  - CONVULSION [None]
  - EPILEPSY [None]
  - FALL [None]
  - FOOT FRACTURE [None]
